FAERS Safety Report 24019079 (Version 1)
Quarter: 2024Q2

REPORT INFORMATION
  Report Type: Spontaneous
  Country: US (occurrence: None)
  Receive Date: 20240627
  Receipt Date: 20240627
  Transmission Date: 20240716
  Serious: Yes (Hospitalization, Other)
  Sender: FDA-Public Use
  Company Number: US-Unichem Pharmaceuticals (USA) Inc-UCM202406-000805

PATIENT
  Age: 35 Year
  Sex: Male

DRUGS (1)
  1. ARIPIPRAZOLE [Suspect]
     Active Substance: ARIPIPRAZOLE
     Indication: Product used for unknown indication
     Dosage: UNKNOWN

REACTIONS (9)
  - Distributive shock [Unknown]
  - Hypertriglyceridaemia [Unknown]
  - Pancreatitis acute [Unknown]
  - Diabetic ketoacidosis [Unknown]
  - Renal tubular necrosis [Unknown]
  - Cardio-respiratory arrest [Unknown]
  - Cognitive disorder [Unknown]
  - Brain injury [Unknown]
  - Diabetes mellitus [Unknown]
